FAERS Safety Report 24194785 (Version 1)
Quarter: 2024Q3

REPORT INFORMATION
  Report Type: Report from Study
  Country: FR (occurrence: FR)
  Receive Date: 20240809
  Receipt Date: 20240809
  Transmission Date: 20241017
  Serious: Yes (Other)
  Sender: PFIZER
  Company Number: FR-ROCHE-10000036541

PATIENT
  Age: 50 Year
  Sex: Male
  Weight: 66 kg

DRUGS (3)
  1. PEMETREXED [Suspect]
     Active Substance: PEMETREXED
     Indication: Neoplasm
     Dosage: ON 09OCT2023, HE RECEIVED MOST RECENT DOSE OF PEMETREXED PRIOR TO AE/SAE ONSET
     Route: 042
     Dates: start: 20230918, end: 20231120
  2. CARBOPLATIN [Suspect]
     Active Substance: CARBOPLATIN
     Indication: Neoplasm
     Dosage: ON 09OCT2023, HE RECEIVED MOST RECENT DOSE OF CARBOPLATIN PRIOR TO AE/SAE ONSET
     Route: 042
     Dates: start: 20230918
  3. PEMBROLIZUMAB [Suspect]
     Active Substance: PEMBROLIZUMAB
     Indication: Neoplasm
     Dosage: ON 09OCT2023, HE RECEIVED MOST RECENT DOSE OF PEMBROLIZUMAB PRIOR TO AE/SAE ONSET
     Route: 042
     Dates: start: 20230918

REACTIONS (1)
  - Hepatic cytolysis [Recovered/Resolved]

NARRATIVE: CASE EVENT DATE: 20231029
